FAERS Safety Report 21526426 (Version 2)
Quarter: 2023Q4

REPORT INFORMATION
  Report Type: Spontaneous
  Country: US (occurrence: US)
  Receive Date: 20221031
  Receipt Date: 20231030
  Transmission Date: 20240109
  Serious: No
  Sender: FDA-Public Use
  Company Number: US-UCBSA-2022028930

PATIENT

DRUGS (2)
  1. VIMPAT [Suspect]
     Active Substance: LACOSAMIDE
     Indication: Product used for unknown indication
     Dosage: 300MG AM AND 400MG PM
  2. VIMPAT [Suspect]
     Active Substance: LACOSAMIDE
     Dosage: 150MG AM AND 200MG PM

REACTIONS (2)
  - Off label use [Unknown]
  - Prescribed overdose [Unknown]
